FAERS Safety Report 8189974-3 (Version None)
Quarter: 2012Q1

REPORT INFORMATION
  Report Type: 
  Country: None (occurrence: None)
  Receive Date: 20120307
  Receipt Date: 20120303
  Transmission Date: 20120608
  Serious: No
  Sender: FDA-Public Use
  Company Number: US-PFIZER INC-2012057177

PATIENT
  Sex: Male

DRUGS (1)
  1. LYRICA [Suspect]
     Dosage: 300 MG, 2X/DAY
     Dates: start: 20110101, end: 20120101

REACTIONS (2)
  - PRURITUS GENERALISED [None]
  - PAIN [None]
